FAERS Safety Report 8268539-9 (Version None)
Quarter: 2012Q2

REPORT INFORMATION
  Report Type: 
  Country: None (occurrence: None)
  Receive Date: 20120409
  Receipt Date: 20120327
  Transmission Date: 20120825
  Serious: Yes (Death, Hospitalization)
  Sender: FDA-Public Use
  Company Number: FR-GLAXOSMITHKLINE-B0792110A

PATIENT
  Age: 59 Year
  Sex: Male

DRUGS (3)
  1. NON STEROIDAL ANTI-INFLAMMATORY DRUG [Concomitant]
     Indication: PRODUCT USED FOR UNKNOWN INDICATION
     Route: 065
  2. ARIXTRA [Suspect]
     Indication: PRODUCT USED FOR UNKNOWN INDICATION
     Dosage: 7.5MG PER DAY
     Route: 058
     Dates: end: 20110301
  3. TAXOTERE [Concomitant]
     Indication: PROSTATE CANCER
     Route: 065

REACTIONS (1)
  - SHOCK HAEMORRHAGIC [None]
